FAERS Safety Report 22131178 (Version 1)
Quarter: 2023Q1

REPORT INFORMATION
  Report Type: Report from Study
  Country: US (occurrence: US)
  Receive Date: 20230323
  Receipt Date: 20230323
  Transmission Date: 20230417
  Serious: Yes (Other)
  Sender: FDA-Public Use
  Company Number: US-ABBVIE-4292247

PATIENT
  Age: 65 Year
  Sex: Female
  Weight: 77.11 kg

DRUGS (2)
  1. HUMIRA [Suspect]
     Active Substance: ADALIMUMAB
     Indication: Rheumatoid arthritis
     Dosage: CITRATE FREE?STRENGTH: 40 MG
     Route: 058
     Dates: start: 2008
  2. HUMIRA [Suspect]
     Active Substance: ADALIMUMAB
     Dosage: CITRATE FREE?STRENGTH: 40 MG
     Route: 058

REACTIONS (3)
  - Limb operation [Recovered/Resolved]
  - Bronchitis [Recovered/Resolved]
  - Influenza [Unknown]

NARRATIVE: CASE EVENT DATE: 20220801
